FAERS Safety Report 20391846 (Version 9)
Quarter: 2023Q2

REPORT INFORMATION
  Report Type: Spontaneous
  Country: US (occurrence: US)
  Receive Date: 20220128
  Receipt Date: 20230512
  Transmission Date: 20230721
  Serious: Yes (Hospitalization, Other)
  Sender: FDA-Public Use
  Company Number: US-PFIZER INC-202101504358

PATIENT
  Age: 76 Year
  Sex: Female

DRUGS (1)
  1. IBRANCE [Suspect]
     Active Substance: PALBOCICLIB
     Indication: Breast cancer female
     Dosage: 100 MG

REACTIONS (13)
  - Localised infection [Unknown]
  - Urinary tract infection [Unknown]
  - Hypotension [Unknown]
  - Dehydration [Unknown]
  - Hip surgery [Unknown]
  - Pharyngeal operation [Unknown]
  - Vocal cord disorder [Unknown]
  - Speech disorder [Not Recovered/Not Resolved]
  - Illness [Unknown]
  - Aphonia [Unknown]
  - Head discomfort [Unknown]
  - Respiratory tract congestion [Unknown]
  - Dyspnoea [Unknown]

NARRATIVE: CASE EVENT DATE: 20221201
